FAERS Safety Report 15127446 (Version 1)
Quarter: 2018Q3

REPORT INFORMATION
  Report Type: Spontaneous
  Country: US (occurrence: US)
  Receive Date: 20180614
  Receipt Date: 20180614
  Transmission Date: 20181010
  Serious: No
  Sender: FDA-Public Use
  Company Number: None

PATIENT
  Age: 47 Year
  Sex: Female

DRUGS (1)
  1. TREMFYA [Suspect]
     Active Substance: GUSELKUMAB
     Dates: start: 20180607, end: 20180614

REACTIONS (4)
  - Blood pressure increased [None]
  - Renal pain [None]
  - Dysuria [None]
  - Headache [None]

NARRATIVE: CASE EVENT DATE: 20180607
